FAERS Safety Report 5678252-X (Version None)
Quarter: 2008Q1

REPORT INFORMATION
  Report Type: 
  Country: None (occurrence: None)
  Receive Date: 20080325
  Receipt Date: 20080325
  Transmission Date: 20080703
  Serious: Yes (Death)
  Sender: FDA-Public Use
  Company Number: None

PATIENT
  Age: 59 Year
  Sex: Male
  Weight: 88.4514 kg

DRUGS (1)
  1. HEPARIN [Suspect]

REACTIONS (4)
  - BLOOD PRESSURE INCREASED [None]
  - CEREBRAL THROMBOSIS [None]
  - DRUG HYPERSENSITIVITY [None]
  - RESPIRATORY ARREST [None]
